FAERS Safety Report 17256418 (Version 1)
Quarter: 2020Q1

REPORT INFORMATION
  Report Type: Spontaneous
  Country: EG (occurrence: EG)
  Receive Date: 20200110
  Receipt Date: 20200110
  Transmission Date: 20200409
  Serious: Yes (Hospitalization, Other)
  Sender: FDA-Public Use
  Company Number: EG-MICRO LABS LIMITED-ML2020-00161

PATIENT
  Age: 34 Year
  Sex: Female
  Weight: 65 kg

DRUGS (2)
  1. ETHINYLESTRADIOL/GESTODENE [Suspect]
     Active Substance: ETHINYL ESTRADIOL\GESTODENE
     Route: 048
     Dates: start: 20180710
  2. LEVOFLOXACIN. [Suspect]
     Active Substance: LEVOFLOXACIN
     Indication: URINARY TRACT INFECTION
     Dosage: SCHEDULED DURATION OF 5 DAYS

REACTIONS (3)
  - Drug interaction [Unknown]
  - Ectopic pregnancy under hormonal contraception [Unknown]
  - Unintended pregnancy [Unknown]
